FAERS Safety Report 15371561 (Version 2)
Quarter: 2018Q3

REPORT INFORMATION
  Report Type: Spontaneous
  Country: BR (occurrence: BR)
  Receive Date: 20180911
  Receipt Date: 20180925
  Transmission Date: 20181010
  Serious: Yes (Hospitalization)
  Sender: FDA-Public Use
  Company Number: PHHY2018BR094642

PATIENT
  Age: 57 Year
  Sex: Male

DRUGS (7)
  1. IMATINIB [Suspect]
     Active Substance: IMATINIB
     Indication: CHRONIC MYELOID LEUKAEMIA
     Dosage: 40 MG, QD
     Route: 065
  2. TASIGNA [Suspect]
     Active Substance: NILOTINIB
     Indication: CHRONIC MYELOID LEUKAEMIA
     Dosage: UNK
     Route: 065
  3. SIMVASTATIN. [Concomitant]
     Active Substance: SIMVASTATIN
     Indication: PRODUCT USED FOR UNKNOWN INDICATION
     Dosage: 20 MG, QD
     Route: 065
  4. LEVOTHYROXINE. [Concomitant]
     Active Substance: LEVOTHYROXINE
     Indication: PRODUCT USED FOR UNKNOWN INDICATION
     Dosage: 75 UG, QD
     Route: 065
  5. ASPIRIN. [Concomitant]
     Active Substance: ASPIRIN
     Indication: PRODUCT USED FOR UNKNOWN INDICATION
     Dosage: 100 MG, QD
     Route: 065
  6. LOSARTAN. [Concomitant]
     Active Substance: LOSARTAN
     Indication: PRODUCT USED FOR UNKNOWN INDICATION
     Dosage: 100 MG, QD
     Route: 065
  7. METHYLPREDNISOLONE. [Concomitant]
     Active Substance: METHYLPREDNISOLONE
     Indication: PRODUCT USED FOR UNKNOWN INDICATION
     Dosage: 1000 MG, QD FOR 3 DAYS
     Route: 042

REACTIONS (15)
  - Perivascular dermatitis [Unknown]
  - Lymphadenopathy [Unknown]
  - Rash [Unknown]
  - Face oedema [Unknown]
  - Serum sickness [Unknown]
  - Rash pruritic [Unknown]
  - Rash maculo-papular [Unknown]
  - Skin exfoliation [Recovering/Resolving]
  - Myalgia [Unknown]
  - Skin disorder [Unknown]
  - Arthralgia [Unknown]
  - Pyrexia [Unknown]
  - Lymphocytic infiltration [Unknown]
  - Drug reaction with eosinophilia and systemic symptoms [Unknown]
  - White blood cell count increased [Unknown]
